FAERS Safety Report 19725166 (Version 1)
Quarter: 2021Q3

REPORT INFORMATION
  Report Type: Spontaneous
  Country: US (occurrence: US)
  Receive Date: 20210820
  Receipt Date: 20210820
  Transmission Date: 20211014
  Serious: Yes (Hospitalization, Other)
  Sender: FDA-Public Use
  Company Number: US-HIKMA PHARMACEUTICALS USA INC.-US-H14001-21-03695

PATIENT
  Age: 52 Year
  Sex: Female

DRUGS (2)
  1. MOTOLIMOD. [Suspect]
     Active Substance: MOTOLIMOD
     Indication: OVARIAN EPITHELIAL CANCER
     Dosage: UNKNOWN
     Route: 065
  2. DOXORUBICIN [Suspect]
     Active Substance: DOXORUBICIN
     Indication: OVARIAN EPITHELIAL CANCER
     Dosage: UNKNOWN
     Route: 065

REACTIONS (5)
  - Hyperkeratosis [Recovering/Resolving]
  - Intertrigo [Recovering/Resolving]
  - Hypokeratosis [Recovering/Resolving]
  - Parakeratosis [Recovering/Resolving]
  - Toxic erythema of chemotherapy [Recovering/Resolving]
